FAERS Safety Report 6321622-7 (Version None)
Quarter: 2009Q3

REPORT INFORMATION
  Report Type: 
  Country: None (occurrence: None)
  Receive Date: 20090824
  Receipt Date: 20090809
  Transmission Date: 20100115
  Serious: Yes (Hospitalization)
  Sender: FDA-Public Use
  Company Number: US-RB-019717-09

PATIENT
  Sex: Female

DRUGS (2)
  1. MUCINEX DM [Suspect]
     Indication: COUGH
     Route: 048
  2. AMOXICILLIN [Concomitant]
     Indication: COUGH

REACTIONS (1)
  - PULMONARY CONGESTION [None]
